FAERS Safety Report 9795294 (Version 2)
Quarter: 2014Q1

REPORT INFORMATION
  Report Type: Spontaneous
  Country: US (occurrence: US)
  Receive Date: 20140103
  Receipt Date: 20140203
  Transmission Date: 20141002
  Serious: No
  Sender: FDA-Public Use
  Company Number: US-009507513-1312USA009487

PATIENT
  Sex: Female

DRUGS (1)
  1. DULERA [Suspect]
     Dosage: TWO INHALATIONS, TWICE DAILY
     Route: 055
     Dates: start: 201112

REACTIONS (4)
  - Drug dose omission [Unknown]
  - Drug dose omission [Unknown]
  - Device malfunction [Unknown]
  - No adverse event [Unknown]
